FAERS Safety Report 4839668-4 (Version None)
Quarter: 2005Q4

REPORT INFORMATION
  Report Type: 
  Country: None (occurrence: None)
  Receive Date: 20051129
  Receipt Date: 20050517
  Transmission Date: 20060501
  Serious: Yes (Hospitalization)
  Sender: FDA-Public Use
  Company Number: US-GLAXOSMITHKLINE-A0558996A

PATIENT
  Sex: Male

DRUGS (4)
  1. WELLBUTRIN [Suspect]
     Indication: DEPRESSION
     Route: 048
     Dates: start: 20030101
  2. ZOCOR [Concomitant]
  3. CLONAZEPAM [Concomitant]
  4. METHADONE [Concomitant]

REACTIONS (1)
  - MYOCARDIAL INFARCTION [None]
